FAERS Safety Report 10524641 (Version 1)
Quarter: 2014Q4

REPORT INFORMATION
  Report Type: Spontaneous
  Country: CA (occurrence: None)
  Receive Date: 20141010
  Receipt Date: 20141010
  Transmission Date: 20150528
  Serious: Yes (Other)
  Sender: FDA-Public Use
  Company Number: 2014-002987

PATIENT
  Age: 32 Year
  Sex: Female
  Weight: 65 kg

DRUGS (5)
  1. ASACOL [Suspect]
     Active Substance: MESALAMINE
  2. FOLIC ACID (FOLIC ACID) [Concomitant]
     Active Substance: FOLIC ACID
  3. REMICADE [Suspect]
     Active Substance: INFLIXIMAB
     Dosage: 1 EVERY 8WEEKS
     Route: 042
  4. IMURAN [Suspect]
     Active Substance: AZATHIOPRINE
  5. PREDNISONE (PREDNISONE) [Suspect]
     Active Substance: PREDNISONE
     Route: 048

REACTIONS (5)
  - Dehydration [None]
  - Syncope [None]
  - Maternal exposure during pregnancy [None]
  - Haematochezia [None]
  - Pneumonia [None]
